FAERS Safety Report 7596194-X (Version None)
Quarter: 2011Q3

REPORT INFORMATION
  Report Type: 
  Country: None (occurrence: None)
  Receive Date: 20110707
  Receipt Date: 20110705
  Transmission Date: 20111222
  Serious: Yes (Other)
  Sender: FDA-Public Use
  Company Number: JP-PFIZER INC-2011106246

PATIENT
  Age: 72 Year
  Sex: Male

DRUGS (5)
  1. VARENICLINE TARTRATE [Suspect]
     Dosage: 1 MG, 2X/DAY
     Dates: start: 20110514, end: 20110525
  2. PREDNISOLONE [Concomitant]
     Indication: COLLAGEN DISORDER
     Dosage: UNK
     Route: 048
  3. VARENICLINE TARTRATE [Suspect]
     Dosage: 0.5 MG, 2X/DAY
     Dates: start: 20110510, end: 20110513
  4. CYCLOPHOSPHAMIDE [Concomitant]
     Indication: COLLAGEN DISORDER
     Dosage: UNK
     Route: 048
  5. VARENICLINE TARTRATE [Suspect]
     Indication: NICOTINE DEPENDENCE
     Dosage: 0.5 MG, 1X/DAY
     Route: 048
     Dates: start: 20110507, end: 20110509

REACTIONS (2)
  - DYSPHORIA [None]
  - RENAL IMPAIRMENT [None]
